FAERS Safety Report 7537008-3 (Version None)
Quarter: 2011Q2

REPORT INFORMATION
  Report Type: 
  Country: None (occurrence: None)
  Receive Date: 20110609
  Receipt Date: 20110601
  Transmission Date: 20111010
  Serious: Yes (Other)
  Sender: FDA-Public Use
  Company Number: PHHY2011CH47528

PATIENT
  Age: 45 Year
  Sex: Female

DRUGS (4)
  1. ISONIAZID [Suspect]
     Indication: BONE TUBERCULOSIS
     Dosage: 300 MG PER DAY
     Dates: start: 20090701
  2. ETHAMBUTOL HYDROCHLORIDE [Suspect]
     Dosage: 1200MG/DAY
     Dates: start: 20090701
  3. PYRAZINAMIDE [Suspect]
     Dosage: 1500 MG/DAY
     Dates: start: 20090701
  4. RIFAMPICIN [Suspect]
     Dosage: 600 MG/DAY
     Dates: start: 20090701

REACTIONS (7)
  - BLOOD ERYTHROPOIETIN INCREASED [None]
  - HEPATIC ENZYME INCREASED [None]
  - SIDEROBLASTIC ANAEMIA [None]
  - PARASPINAL ABSCESS [None]
  - HAEMOGLOBIN DECREASED [None]
  - RED BLOOD CELL ABNORMALITY [None]
  - DYSPNOEA [None]
